FAERS Safety Report 14446530 (Version 1)
Quarter: 2018Q1

REPORT INFORMATION
  Report Type: Spontaneous
  Country: US (occurrence: US)
  Receive Date: 20180126
  Receipt Date: 20180126
  Transmission Date: 20180509
  Serious: Yes (Other)
  Sender: FDA-Public Use
  Company Number: US-TEVA-2018-US-850223

PATIENT
  Age: 14 Year
  Sex: Male

DRUGS (4)
  1. ALBUTEROL. [Suspect]
     Active Substance: ALBUTEROL
     Indication: ASTHMA
     Dosage: SALBUTAMOL NEBULISER: USED UPTO 25 TIMES DAILY (OVERUSE)
     Route: 055
  2. CITALOPRAM [Concomitant]
     Active Substance: CITALOPRAM HYDROBROMIDE
     Indication: ANXIETY
     Route: 065
  3. FLUTICASONE. [Suspect]
     Active Substance: FLUTICASONE
     Indication: ASTHMA
     Dosage: 200MG THREE TIMES A DAY
     Route: 065
  4. SALMETEROL [Concomitant]
     Active Substance: SALMETEROL
     Indication: ASTHMA
     Route: 065

REACTIONS (5)
  - Dysmetria [Recovering/Resolving]
  - Overdose [Unknown]
  - Hyperreflexia [Recovering/Resolving]
  - Hypertension [Recovering/Resolving]
  - Tachycardia [Recovering/Resolving]
